FAERS Safety Report 18884160 (Version 3)
Quarter: 2021Q2

REPORT INFORMATION
  Report Type: Spontaneous
  Country: US (occurrence: US)
  Receive Date: 20210212
  Receipt Date: 20210406
  Transmission Date: 20210717
  Serious: No
  Sender: FDA-Public Use
  Company Number: US-SAGE-2021SAGE000013

PATIENT
  Age: 38 Year
  Sex: Female

DRUGS (1)
  1. ZULRESSO [Suspect]
     Active Substance: BREXANOLONE
     Indication: PERINATAL DEPRESSION
     Dosage: UNK
     Route: 042
     Dates: start: 20210201, end: 20210204

REACTIONS (7)
  - Therapeutic product effect incomplete [Unknown]
  - Product administration error [Recovered/Resolved]
  - Heart rate decreased [Unknown]
  - Insomnia [Unknown]
  - Infusion site bruising [Unknown]
  - Infusion site extravasation [Unknown]
  - Infusion site joint swelling [Unknown]

NARRATIVE: CASE EVENT DATE: 202102
